FAERS Safety Report 23807300 (Version 9)
Quarter: 2025Q4

REPORT INFORMATION
  Report Type: Spontaneous
  Country: EU (occurrence: EU)
  Receive Date: 20240502
  Receipt Date: 20251027
  Transmission Date: 20260118
  Serious: Yes (Other)
  Sender: JOHNSON AND JOHNSON
  Company Number: EU-JNJFOC-20240478787

PATIENT
  Age: 41 Year
  Sex: Male
  Weight: 82 kg

DRUGS (3)
  1. PALIPERIDONE PALMITATE [Suspect]
     Active Substance: PALIPERIDONE PALMITATE
     Indication: Psychotic disorder
     Dosage: LAST DRUG ADMINISTRATION: 24/APR/2024
     Route: 030
     Dates: start: 2022
  2. PALIPERIDONE PALMITATE [Suspect]
     Active Substance: PALIPERIDONE PALMITATE
  3. PALIPERIDONE PALMITATE [Suspect]
     Active Substance: PALIPERIDONE PALMITATE

REACTIONS (19)
  - Drug dependence [Recovering/Resolving]
  - Poisoning [Recovering/Resolving]
  - Back pain [Recovering/Resolving]
  - Paranoia [Recovering/Resolving]
  - Discomfort [Recovering/Resolving]
  - Treatment noncompliance [Unknown]
  - Chest pain [Recovered/Resolved]
  - Amnesia [Recovering/Resolving]
  - Dyslexia [Recovering/Resolving]
  - Drug ineffective [Recovering/Resolving]
  - Musculoskeletal stiffness [Recovering/Resolving]
  - Heart rate irregular [Recovering/Resolving]
  - Nail ridging [Recovering/Resolving]
  - Libido decreased [Recovering/Resolving]
  - Weight decreased [Recovering/Resolving]
  - Headache [Recovering/Resolving]
  - Blood blister [Unknown]
  - Blister rupture [Unknown]
  - Pain [Unknown]
